FAERS Safety Report 13117932 (Version 1)
Quarter: 2017Q1

REPORT INFORMATION
  Report Type: Spontaneous
  Country: US (occurrence: US)
  Receive Date: 20170116
  Receipt Date: 20170116
  Transmission Date: 20170428
  Serious: No
  Sender: FDA-Public Use
  Company Number: US-JNJFOC-20161220714

PATIENT
  Sex: Female

DRUGS (1)
  1. METHYERTAB-A [Suspect]
     Active Substance: METHYLPHENIDATE HYDROCHLORIDE
     Indication: PRODUCT USED FOR UNKNOWN INDICATION
     Dosage: STENGTH 18 MG
     Route: 065

REACTIONS (2)
  - Drug prescribing error [Unknown]
  - Off label use [Unknown]
